FAERS Safety Report 10932961 (Version 1)
Quarter: 2015Q1

REPORT INFORMATION
  Report Type: Report from Study
  Country: IN (occurrence: IN)
  Receive Date: 20150320
  Receipt Date: 20150320
  Transmission Date: 20150721
  Serious: Yes (Death)
  Sender: FDA-Public Use
  Company Number: IN-ROCHE-1552863

PATIENT
  Age: 60 Year
  Sex: Male

DRUGS (2)
  1. EXXURA [Suspect]
     Active Substance: PEGINTERFERON ALFA-2A
     Indication: HEPATITIS C
     Dosage: 180MCG WEEKLY
     Route: 058
     Dates: start: 20141128, end: 20150109
  2. COPEGUS [Suspect]
     Active Substance: RIBAVIRIN
     Indication: HEPATITIS C
     Dosage: 4 TABLETS
     Route: 048
     Dates: start: 20141128, end: 20150109

REACTIONS (1)
  - Viral load increased [Fatal]

NARRATIVE: CASE EVENT DATE: 20150126
